FAERS Safety Report 7349838-1 (Version None)
Quarter: 2011Q1

REPORT INFORMATION
  Report Type: 
  Country: None (occurrence: None)
  Receive Date: 20110314
  Receipt Date: 20110307
  Transmission Date: 20110831
  Serious: Yes (Death, Other)
  Sender: FDA-Public Use
  Company Number: US-ROCHE-698600

PATIENT

DRUGS (4)
  1. PEGFILGRASTIM [Suspect]
     Indication: BREAST CANCER
     Dosage: ON DAY 2
     Route: 058
  2. BEVACIZUMAB [Suspect]
     Indication: BREAST CANCER
     Route: 042
  3. CYCLOPHOSPHAMIDE [Suspect]
     Indication: BREAST CANCER
     Route: 042
  4. DOXORUBICIN [Suspect]
     Indication: BREAST CANCER
     Route: 042

REACTIONS (8)
  - HEPATITIS B [None]
  - DEATH [None]
  - EJECTION FRACTION DECREASED [None]
  - MULTI-ORGAN FAILURE [None]
  - TOXICITY TO VARIOUS AGENTS [None]
  - NEOPLASM MALIGNANT [None]
  - SEPSIS [None]
  - PNEUMONIA VIRAL [None]
